FAERS Safety Report 7153994-8 (Version None)
Quarter: 2010Q4

REPORT INFORMATION
  Report Type: 
  Country: None (occurrence: None)
  Receive Date: 20101213
  Receipt Date: 20101202
  Transmission Date: 20110411
  Serious: Yes (Hospitalization, Disabling)
  Sender: FDA-Public Use
  Company Number: JP-ASTRAZENECA-2010SE54631

PATIENT
  Age: 62 Year
  Sex: Female
  Weight: 36 kg

DRUGS (10)
  1. IRESSA [Suspect]
     Indication: LUNG NEOPLASM MALIGNANT
     Route: 048
     Dates: start: 20090314, end: 20101108
  2. DEPAKENE [Suspect]
     Indication: CONVULSION
     Route: 048
     Dates: start: 20091202, end: 20101109
  3. NAUZELIN [Concomitant]
     Route: 048
  4. HYPEN [Concomitant]
     Route: 048
  5. OMEPRAL TABLETS [Concomitant]
     Route: 048
  6. ALFAROL [Concomitant]
     Route: 048
  7. LASIX [Concomitant]
     Route: 048
  8. DEPAS [Concomitant]
     Route: 048
  9. VESICARE [Concomitant]
     Route: 048
  10. DUROTEP [Concomitant]
     Route: 062

REACTIONS (4)
  - ALTERED STATE OF CONSCIOUSNESS [None]
  - LIVER DISORDER [None]
  - PNEUMONIA [None]
  - RENAL FAILURE [None]
